FAERS Safety Report 14691739 (Version 1)
Quarter: 2018Q1

REPORT INFORMATION
  Report Type: Spontaneous
  Country: US (occurrence: US)
  Receive Date: 20180329
  Receipt Date: 20180329
  Transmission Date: 20180509
  Serious: No
  Sender: FDA-Public Use
  Company Number: US-USVNA-000006

PATIENT
  Sex: Female

DRUGS (1)
  1. OLOPATADINE/OLOPATADINE HYDROCHLORIDE [Suspect]
     Active Substance: OLOPATADINE
     Indication: PRURITUS
     Dosage: STRENGTH: 0.1%

REACTIONS (2)
  - Product substitution issue [Unknown]
  - Drug ineffective [Unknown]
